FAERS Safety Report 21179966 (Version 1)
Quarter: 2022Q3

REPORT INFORMATION
  Report Type: Spontaneous
  Country: CN (occurrence: CN)
  Receive Date: 20220805
  Receipt Date: 20220805
  Transmission Date: 20221026
  Serious: Yes (Other)
  Sender: FDA-Public Use
  Company Number: CN-PFIZER INC-PV202200037445

PATIENT
  Age: 44 Year
  Sex: Female
  Weight: 65 kg

DRUGS (2)
  1. CELECOXIB [Suspect]
     Active Substance: CELECOXIB
     Indication: Arthritis
     Dosage: 0.2 G, 1X/DAY
     Route: 048
     Dates: start: 20220725, end: 20220803
  2. CELECOXIB [Suspect]
     Active Substance: CELECOXIB
     Indication: Plantar fasciitis

REACTIONS (8)
  - Erythema [Recovering/Resolving]
  - Papule [Recovering/Resolving]
  - Pharyngeal haemorrhage [Unknown]
  - Rash [Unknown]
  - Pruritus [Unknown]
  - Drug eruption [Unknown]
  - Lip dry [Unknown]
  - Lip scab [Unknown]

NARRATIVE: CASE EVENT DATE: 20220801
